FAERS Safety Report 20790476 (Version 2)
Quarter: 2022Q2

REPORT INFORMATION
  Report Type: Spontaneous
  Country: AU (occurrence: AU)
  Receive Date: 20220505
  Receipt Date: 20220601
  Transmission Date: 20220721
  Serious: Yes (Death, Other)
  Sender: FDA-Public Use
  Company Number: AU-TEVA-2022-AU-2018267

PATIENT
  Age: 5 Year
  Sex: Female
  Weight: 15.4 kg

DRUGS (10)
  1. IMATINIB [Suspect]
     Active Substance: IMATINIB
     Route: 065
     Dates: end: 202105
  2. TACROLIMUS [Suspect]
     Active Substance: TACROLIMUS
     Indication: Graft versus host disease
     Route: 065
     Dates: end: 201811
  3. CYCLOSPORINE [Suspect]
     Active Substance: CYCLOSPORINE
     Indication: Graft versus host disease
     Route: 065
     Dates: end: 202103
  4. METHYLPREDNISOLONE [Suspect]
     Active Substance: METHYLPREDNISOLONE
     Route: 065
  5. PREDNISONE [Suspect]
     Active Substance: PREDNISONE
     Route: 065
  6. SIROLIMUS [Suspect]
     Active Substance: SIROLIMUS
     Route: 065
  7. RITUXIMAB [Suspect]
     Active Substance: RITUXIMAB
     Indication: Graft versus host disease
     Route: 065
     Dates: end: 201812
  8. CLONIDINE [Concomitant]
     Active Substance: CLONIDINE
  9. MICAFUNGIN [Concomitant]
     Active Substance: MICAFUNGIN
  10. MORPHINE [Concomitant]
     Active Substance: MORPHINE

REACTIONS (5)
  - Aspiration [Fatal]
  - Respiratory arrest [Fatal]
  - Cyanosis [Unknown]
  - Condition aggravated [Unknown]
  - Vomiting [Unknown]

NARRATIVE: CASE EVENT DATE: 20220415
